FAERS Safety Report 13059266 (Version 1)
Quarter: 2016Q4

REPORT INFORMATION
  Report Type: Spontaneous
  Country: US (occurrence: US)
  Receive Date: 20161223
  Receipt Date: 20161223
  Transmission Date: 20170207
  Serious: No
  Sender: FDA-Public Use
  Company Number: US-BAUSCH-BL-2016-020143

PATIENT
  Age: 56 Year
  Sex: Male

DRUGS (1)
  1. XENAZINE [Suspect]
     Active Substance: TETRABENAZINE
     Indication: TARDIVE DYSKINESIA
     Dosage: 25MG OF THE SUSPECT PRODUCT ONCE IN THE MORNING AND ONCE IN THE NIGHT AND 12.5MG IN THE AFTERNOON
     Route: 048
     Dates: start: 201212

REACTIONS (2)
  - Off label use [Unknown]
  - Drug prescribing error [Unknown]

NARRATIVE: CASE EVENT DATE: 201212
